FAERS Safety Report 8520115-6 (Version None)
Quarter: 2012Q3

REPORT INFORMATION
  Report Type: 
  Country: None (occurrence: None)
  Receive Date: 20120719
  Receipt Date: 20110829
  Transmission Date: 20120928
  Serious: No
  Sender: FDA-Public Use
  Company Number: US-MYLANLABS-2011S1018245

PATIENT
  Age: 75 Year
  Sex: Female
  Weight: 65.32 kg

DRUGS (10)
  1. TRIAMTERENE AND HYDROCHLOROTHIAZIDE [Suspect]
     Indication: JOINT SWELLING
     Route: 048
     Dates: end: 20110829
  2. CLONIDINE [Concomitant]
  3. TRIAMTERENE AND HYDROCHLOROTHIAZIDE [Suspect]
     Indication: OEDEMA PERIPHERAL
     Route: 048
     Dates: end: 20110829
  4. ASPIRIN [Concomitant]
  5. TRIAMTERENE AND HYDROCHLOROTHIAZIDE [Suspect]
     Indication: BLOOD PRESSURE INCREASED
     Route: 048
     Dates: end: 20110829
  6. PANTOPRAZOLE [Concomitant]
  7. AMLODIPINE [Concomitant]
  8. NORCO [Concomitant]
  9. COMBIVENT [Concomitant]
  10. FLOVENT [Concomitant]

REACTIONS (3)
  - ERYTHEMA [None]
  - DIZZINESS [None]
  - SUNBURN [None]
